FAERS Safety Report 4492012-7 (Version None)
Quarter: 2004Q4

REPORT INFORMATION
  Report Type: 
  Country: None (occurrence: None)
  Receive Date: 20041101
  Receipt Date: 20041019
  Transmission Date: 20050328
  Serious: Yes (Hospitalization, Disabling, Other)
  Sender: FDA-Public Use
  Company Number: 2004-00671

PATIENT
  Age: 63 Year
  Sex: Male

DRUGS (7)
  1. VELCADE [Suspect]
     Indication: MULTIPLE MYELOMA
     Dosage: INTRAVENOUS
     Route: 042
     Dates: start: 20040820
  2. SERTRALINE HYDROCHLORIDE [Concomitant]
  3. CLONAZEPAM [Concomitant]
  4. DILTIAZEM [Concomitant]
  5. FENTANYL [Concomitant]
  6. ALBUTEROL [Concomitant]
  7. PENTOXIFYLLINE [Concomitant]

REACTIONS (8)
  - ABDOMINAL PAIN [None]
  - CONFUSIONAL STATE [None]
  - HEPATIC FAILURE [None]
  - HEPATIC FIBROSIS [None]
  - HEPATIC STEATOSIS [None]
  - HEPATITIS [None]
  - HEPATOMEGALY [None]
  - TRANSFERRIN SATURATION INCREASED [None]
